FAERS Safety Report 6230232-1 (Version None)
Quarter: 2009Q2

REPORT INFORMATION
  Report Type: 
  Country: None (occurrence: None)
  Receive Date: 20090615
  Receipt Date: 20090602
  Transmission Date: 20091009
  Serious: Yes (Other)
  Sender: FDA-Public Use
  Company Number: IN-MYLANLABS-2009S1009733

PATIENT
  Age: 36 Year
  Sex: Female

DRUGS (4)
  1. BUPROPION HCL [Suspect]
     Indication: DEPRESSION
     Dosage: SUSTAINED RELEASE FORMULATION
  2. BUPROPION HCL [Suspect]
     Dosage: SUSTAINED RELEASE FORMULATION
  3. LITHIUM CARBONATE [Concomitant]
     Indication: BIPOLAR DISORDER
  4. CLONAZEPAM [Concomitant]
     Indication: DEPRESSION

REACTIONS (1)
  - SCHIZOPHRENIA, PARANOID TYPE [None]
